FAERS Safety Report 8488855-5 (Version None)
Quarter: 2012Q3

REPORT INFORMATION
  Report Type: 
  Country: None (occurrence: None)
  Receive Date: 20120705
  Receipt Date: 20120627
  Transmission Date: 20120928
  Serious: No
  Sender: FDA-Public Use
  Company Number: US-ROCHE-GNE291369

PATIENT
  Sex: Male

DRUGS (3)
  1. RANIBIZUMAB [Suspect]
     Indication: AGE-RELATED MACULAR DEGENERATION
     Route: 042
     Dates: start: 20090401
  2. RANIBIZUMAB [Suspect]
     Dosage: 0.7 MG, UNK
  3. AVASTIN [Suspect]
     Indication: AGE-RELATED MACULAR DEGENERATION
     Dosage: PRN
     Route: 042

REACTIONS (3)
  - EYE HAEMORRHAGE [None]
  - FOREIGN BODY SENSATION IN EYES [None]
  - PAIN [None]
